FAERS Safety Report 5250586-2 (Version None)
Quarter: 2007Q1

REPORT INFORMATION
  Report Type: 
  Country: None (occurrence: None)
  Receive Date: 20070228
  Receipt Date: 20060601
  Transmission Date: 20070707
  Serious: No
  Sender: FDA-Public Use
  Company Number: US-GLAXOSMITHKLINE-A0607590A

PATIENT
  Age: 52 Year
  Sex: Female

DRUGS (7)
  1. LAMICTAL [Suspect]
     Indication: BIPOLAR DISORDER
     Dosage: 25MG PER DAY
     Route: 048
     Dates: start: 20060530
  2. SYNTHROID [Concomitant]
  3. ADVAIR DISKUS 100/50 [Concomitant]
  4. FLONASE [Concomitant]
  5. SINGULAIR [Concomitant]
  6. XANAX [Concomitant]
  7. LIPITOR [Concomitant]

REACTIONS (1)
  - RASH PRURITIC [None]
